FAERS Safety Report 15889110 (Version 6)
Quarter: 2022Q3

REPORT INFORMATION
  Report Type: Report from Study
  Country: FI (occurrence: FI)
  Receive Date: 20190130
  Receipt Date: 20220729
  Transmission Date: 20221027
  Serious: Yes (Hospitalization)
  Sender: FDA-Public Use
  Company Number: PHHO2018FI013590

PATIENT
  Age: 71 Year
  Sex: Female
  Weight: 60 kg

DRUGS (5)
  1. SABATOLIMAB [Suspect]
     Active Substance: SABATOLIMAB
     Indication: Acute leukaemia
     Dosage: 400 MG, Q4W
     Route: 042
     Dates: start: 20181016, end: 20181210
  2. PANADOL [Concomitant]
     Active Substance: ACETAMINOPHEN
     Indication: Pyrexia
     Dosage: 500 MG, 6QD
     Route: 048
     Dates: start: 20180930
  3. ALLOPURINOL [Concomitant]
     Active Substance: ALLOPURINOL
     Indication: Product used for unknown indication
     Dosage: 300 MG, QD
     Route: 048
     Dates: start: 20181008
  4. CALCIUM CARBONATE\CHOLECALCIFEROL [Concomitant]
     Active Substance: CALCIUM CARBONATE\CHOLECALCIFEROL
     Indication: Product used for unknown indication
     Dosage: 500 MG, BID
     Route: 048
     Dates: start: 20170412
  5. ENOXAPARIN [Concomitant]
     Active Substance: ENOXAPARIN
     Indication: Product used for unknown indication
     Dosage: 40 MG, QD
     Route: 058
     Dates: start: 20181011

REACTIONS (4)
  - Haemophagocytic lymphohistiocytosis [Not Recovered/Not Resolved]
  - Febrile neutropenia [Recovered/Resolved]
  - Pneumonia [Not Recovered/Not Resolved]
  - Febrile neutropenia [Recovered/Resolved]

NARRATIVE: CASE EVENT DATE: 20181026
